FAERS Safety Report 9085980 (Version 1)
Quarter: 2013Q1

REPORT INFORMATION
  Report Type: Spontaneous
  Country: US (occurrence: US)
  Receive Date: 20130218
  Receipt Date: 20130218
  Transmission Date: 20140127
  Serious: Yes (Hospitalization, Other)
  Sender: FDA-Public Use
  Company Number: US-ASTRAZENECA-2013SE09169

PATIENT
  Age: 54 Year
  Sex: Female

DRUGS (9)
  1. SEROQUEL [Suspect]
     Route: 048
     Dates: start: 20080319
  2. ALBUTEROL [Concomitant]
     Dates: start: 200805
  3. ABILIFY [Concomitant]
     Dates: start: 200805
  4. LAMICTAL [Concomitant]
     Dates: start: 200805
  5. VICODIN [Concomitant]
     Dates: start: 200805
  6. XANAX [Concomitant]
     Dates: start: 200805
  7. PAXIL [Concomitant]
     Dates: start: 200805
  8. REMERON [Concomitant]
     Indication: DEPRESSION
     Dates: start: 200805
  9. DEPAKOTE [Concomitant]
     Dates: start: 200805

REACTIONS (9)
  - Suicide attempt [Unknown]
  - Diabetes mellitus inadequate control [Unknown]
  - Hypoglycaemia [Unknown]
  - Neuropathy peripheral [Unknown]
  - Diabetes mellitus [Unknown]
  - Hypothyroidism [Unknown]
  - Pharyngitis [Unknown]
  - Chronic obstructive pulmonary disease [Unknown]
  - Nephrolithiasis [Unknown]
